FAERS Safety Report 5919550-1 (Version None)
Quarter: 2008Q4

REPORT INFORMATION
  Report Type: 
  Country: None (occurrence: None)
  Receive Date: 20081015
  Receipt Date: 20071113
  Transmission Date: 20090506
  Serious: Yes (Other)
  Sender: FDA-Public Use
  Company Number: US-BRISTOL-MYERS SQUIBB COMPANY-13902895

PATIENT
  Age: 49 Year
  Sex: Male
  Weight: 107 kg

DRUGS (4)
  1. KENALOG-40 [Suspect]
     Indication: BACK PAIN
     Dosage: 1ST INJECTION- MID FEB 2007 2ND INJECTION END OF FEB 2007 OR EARLY MARCH 2007
  2. FLEXERIL [Concomitant]
     Dosage: STOPPED FROM MID MARCH TO MID APRIL
  3. VICODIN [Concomitant]
     Dosage: STOPPED FROM MID MARCH TO MID APRIL
  4. NAPROSYN [Concomitant]
     Dosage: STOPPED FROM MID MARCH TO MID APRIL

REACTIONS (8)
  - ABDOMINAL DISTENSION [None]
  - ARTHRALGIA [None]
  - BLOOD PRESSURE INCREASED [None]
  - DERMATITIS PSORIASIFORM [None]
  - EYE DISORDER [None]
  - FATIGUE [None]
  - HAEMATOMA [None]
  - HEADACHE [None]
